FAERS Safety Report 10187436 (Version 1)
Quarter: 2014Q2

REPORT INFORMATION
  Report Type: Spontaneous
  Country: US (occurrence: None)
  Receive Date: 20140521
  Receipt Date: 20140521
  Transmission Date: 20141212
  Serious: No
  Sender: FDA-Public Use
  Company Number: None

PATIENT
  Age: 50 Year
  Sex: Male
  Weight: 83.01 kg

DRUGS (1)
  1. DULOXETINE [Suspect]
     Indication: MUSCULOSKELETAL PAIN
     Dosage: ONE TABLET QD PO
     Route: 048

REACTIONS (2)
  - Nausea [None]
  - Headache [None]
